FAERS Safety Report 6922484-7 (Version None)
Quarter: 2010Q3

REPORT INFORMATION
  Report Type: 
  Country: None (occurrence: None)
  Receive Date: 20100813
  Receipt Date: 20100806
  Transmission Date: 20110219
  Serious: Yes (Hospitalization)
  Sender: FDA-Public Use
  Company Number: IT-BAYER-201035348GPV

PATIENT
  Age: 83 Year
  Sex: Male

DRUGS (7)
  1. CIPROXIN [Suspect]
     Indication: URINARY TRACT INFECTION
     Dosage: UNIT DOSE: 500 MG
     Route: 048
     Dates: start: 20100620, end: 20100713
  2. AUGMENTIN '125' [Suspect]
     Indication: URINARY TRACT INFECTION
     Dosage: AS USED: 875/125 MG
     Route: 048
     Dates: start: 20100630, end: 20100713
  3. RIXIL / VALSARTAN [Concomitant]
     Indication: HYPERTENSION
     Dosage: UNIT DOSE: 40 MG
     Route: 048
     Dates: start: 20080101, end: 20100803
  4. SPIRIVA [Concomitant]
     Indication: BRONCHOPNEUMOPATHY
     Dosage: UNIT DOSE: 18 ?G
     Route: 055
     Dates: start: 20080101, end: 20100803
  5. FOSTER [Concomitant]
     Indication: BRONCHOPNEUMOPATHY
     Dosage: AS USED: 100/6 ?G
     Route: 055
     Dates: start: 20080101, end: 20100803
  6. METHOTREXATE [Concomitant]
     Indication: RHEUMATOID ARTHRITIS
     Dosage: UNIT DOSE: 2.5 MG
     Route: 048
     Dates: start: 20080101, end: 20100803
  7. EUTIROX [Concomitant]
     Indication: HYPOTHYROIDISM
     Dates: start: 20080101, end: 20100803

REACTIONS (1)
  - HYPONATRAEMIA [None]
